FAERS Safety Report 12104655 (Version 1)
Quarter: 2016Q1

REPORT INFORMATION
  Report Type: Other
  Country: US (occurrence: US)
  Receive Date: 20160223
  Receipt Date: 20160223
  Transmission Date: 20160526
  Serious: Yes (Hospitalization, Other)
  Sender: FDA-Public Use
  Company Number: US-SHIRE-US201601662

PATIENT
  Age: 57 Year
  Sex: Female

DRUGS (1)
  1. GATTEX [Suspect]
     Active Substance: TEDUGLUTIDE\WATER
     Indication: SHORT-BOWEL SYNDROME
     Dosage: UNK
     Route: 058
     Dates: start: 20150925, end: 20160121

REACTIONS (7)
  - Abdominal pain upper [Unknown]
  - Dehydration [Not Recovered/Not Resolved]
  - Intestinal obstruction [Recovered/Resolved]
  - Cystitis [Unknown]
  - Malnutrition [Not Recovered/Not Resolved]
  - Abdominal distension [Recovered/Resolved]
  - Weight decreased [Not Recovered/Not Resolved]

NARRATIVE: CASE EVENT DATE: 20160119
